FAERS Safety Report 15780672 (Version 1)
Quarter: 2019Q1

REPORT INFORMATION
  Report Type: Other
  Country: CN (occurrence: CN)
  Receive Date: 20190102
  Receipt Date: 20190102
  Transmission Date: 20190417
  Serious: Yes (Hospitalization)
  Sender: FDA-Public Use
  Company Number: CN-ASTELLAS-2019US000044

PATIENT
  Age: 67 Year
  Sex: Male
  Weight: 56 kg

DRUGS (2)
  1. ERLOTINIB [Suspect]
     Active Substance: ERLOTINIB
     Route: 048
  2. ERLOTINIB [Suspect]
     Active Substance: ERLOTINIB
     Indication: LUNG NEOPLASM MALIGNANT
     Route: 048
     Dates: start: 20180208

REACTIONS (6)
  - Pain in extremity [Recovering/Resolving]
  - Rash [Recovering/Resolving]
  - Skin fissures [Recovering/Resolving]
  - Pruritus [Recovering/Resolving]
  - Skin exfoliation [Unknown]
  - Nail bed infection [Unknown]

NARRATIVE: CASE EVENT DATE: 20181008
